FAERS Safety Report 19250364 (Version 1)
Quarter: 2021Q2

REPORT INFORMATION
  Report Type: Spontaneous
  Country: US (occurrence: US)
  Receive Date: 20210512
  Receipt Date: 20210512
  Transmission Date: 20210717
  Serious: No
  Sender: FDA-Public Use
  Company Number: US-BIOMARINAP-US-2021-136164

PATIENT
  Age: 41 Year
  Sex: Female
  Weight: 28.12 kg

DRUGS (14)
  1. BIOTIN [Concomitant]
     Active Substance: BIOTIN
     Indication: PRODUCT USED FOR UNKNOWN INDICATION
     Dosage: UNK
  2. TRAMADOL. [Concomitant]
     Active Substance: TRAMADOL
     Indication: PRODUCT USED FOR UNKNOWN INDICATION
  3. LMX [Concomitant]
     Indication: PRODUCT USED FOR UNKNOWN INDICATION
  4. CELECOXIB. [Concomitant]
     Active Substance: CELECOXIB
     Indication: PRODUCT USED FOR UNKNOWN INDICATION
  5. VIMIZIM [Suspect]
     Active Substance: ELOSULFASE ALFA
     Indication: MUCOPOLYSACCHARIDOSIS IV
     Dosage: 55 MILLIGRAM, QW
     Route: 042
     Dates: start: 20180606
  6. MULTIVITAMIN [Concomitant]
     Active Substance: VITAMINS
     Indication: PRODUCT USED FOR UNKNOWN INDICATION
  7. TACROLIMUS. [Concomitant]
     Active Substance: TACROLIMUS
     Indication: PRODUCT USED FOR UNKNOWN INDICATION
  8. EPINEPHRINE. [Concomitant]
     Active Substance: EPINEPHRINE
     Indication: PRODUCT USED FOR UNKNOWN INDICATION
  9. ATORVASTATIN [Concomitant]
     Active Substance: ATORVASTATIN
     Indication: PRODUCT USED FOR UNKNOWN INDICATION
  10. DIPHENHYDRAMINE. [Concomitant]
     Active Substance: DIPHENHYDRAMINE
     Indication: PRODUCT USED FOR UNKNOWN INDICATION
  11. NORMAL SALINE [Concomitant]
     Active Substance: SODIUM CHLORIDE
     Indication: PRODUCT USED FOR UNKNOWN INDICATION
  12. LESSINA [Concomitant]
     Active Substance: ETHINYL ESTRADIOL\LEVONORGESTREL
     Indication: PRODUCT USED FOR UNKNOWN INDICATION
  13. MODERNA COVID?19 VACCINE [Suspect]
     Active Substance: CX-024414
     Indication: IMMUNISATION
     Dosage: UNK
     Route: 065
     Dates: start: 20210226
  14. HEPARIN [Concomitant]
     Active Substance: HEPARIN SODIUM
     Indication: PRODUCT USED FOR UNKNOWN INDICATION

REACTIONS (4)
  - Arthralgia [Unknown]
  - Myalgia [Unknown]
  - Nausea [Unknown]
  - Fatigue [Unknown]

NARRATIVE: CASE EVENT DATE: 20210226
